FAERS Safety Report 5840269-X (Version None)
Quarter: 2008Q3

REPORT INFORMATION
  Report Type: 
  Country: None (occurrence: None)
  Receive Date: 20080807
  Receipt Date: 20080807
  Transmission Date: 20090109
  Serious: Yes (Other)
  Sender: FDA-Public Use
  Company Number: None

PATIENT
  Age: 60 Year
  Sex: Male
  Weight: 195.0467 kg

DRUGS (11)
  1. LANTUS [Suspect]
     Indication: TYPE 2 DIABETES MELLITUS
     Dosage: 20 UNITS ONCE DAILY SQ
     Route: 058
     Dates: start: 20080507, end: 20080620
  2. GLIPIZIDE [Concomitant]
  3. LISINOPRIL [Concomitant]
  4. HYDROCHLOROTHIAZIDE [Concomitant]
  5. METOPROLOL SUCCINATE [Concomitant]
  6. AMLODIPINE [Concomitant]
  7. SIMVASTATIN [Concomitant]
  8. ASPIRIN [Concomitant]
  9. BENADRYL [Concomitant]
  10. CALCIUM [Concomitant]
  11. VITAMIN E [Concomitant]

REACTIONS (1)
  - RASH [None]
